FAERS Safety Report 25132749 (Version 1)
Quarter: 2025Q1

REPORT INFORMATION
  Report Type: Spontaneous
  Country: US (occurrence: US)
  Receive Date: 20250328
  Receipt Date: 20250328
  Transmission Date: 20250409
  Serious: Yes (Other)
  Sender: TEVA
  Company Number: US-TEVA-VS-3311404

PATIENT
  Age: 72 Year
  Sex: Male

DRUGS (1)
  1. AUSTEDO XR [Suspect]
     Active Substance: DEUTETRABENAZINE
     Indication: Tardive dyskinesia
     Route: 048
     Dates: start: 2025

REACTIONS (6)
  - Tardive dyskinesia [Unknown]
  - Tic [Unknown]
  - Living in residential institution [Unknown]
  - Restlessness [Unknown]
  - Akathisia [Unknown]
  - Constipation [Unknown]

NARRATIVE: CASE EVENT DATE: 20250101
